FAERS Safety Report 5748774-1 (Version None)
Quarter: 2008Q2

REPORT INFORMATION
  Report Type: 
  Country: None (occurrence: None)
  Receive Date: 20080522
  Receipt Date: 20080512
  Transmission Date: 20081010
  Serious: Yes (Death)
  Sender: FDA-Public Use
  Company Number: SPV1-2008-01073

PATIENT
  Sex: Male
  Weight: 90.7 kg

DRUGS (1)
  1. FOSRENOL [Suspect]
     Indication: HYPERPHOSPHATAEMIA
     Dates: end: 20080505

REACTIONS (5)
  - ANEURYSM [None]
  - ANOREXIA [None]
  - HAEMORRHAGE [None]
  - THROMBOSIS [None]
  - WEIGHT DECREASED [None]
